FAERS Safety Report 5060987-3 (Version None)
Quarter: 2006Q3

REPORT INFORMATION
  Report Type: 
  Country: None (occurrence: None)
  Receive Date: 20060720
  Receipt Date: 20060720
  Transmission Date: 20061208
  Serious: Yes (Hospitalization)
  Sender: FDA-Public Use
  Company Number: None

PATIENT
  Sex: Male

DRUGS (21)
  1. AMITRIPTYLINE HCL [Suspect]
     Dosage: 75 MG TID PO
     Route: 048
     Dates: start: 20060502, end: 20060503
  2. ALBUTEROL SPIROS [Concomitant]
  3. CAPSAICIN [Concomitant]
  4. CEPHALEXIN [Concomitant]
  5. CIPROFLOXACIN [Concomitant]
  6. COMBIVENT [Concomitant]
  7. DOCUSATE [Concomitant]
  8. FINASTERIDE [Concomitant]
  9. FLUNISOLIDE ORAL INHALER [Concomitant]
  10. FORMOTEROL [Concomitant]
  11. GUAIFENESIN SA [Concomitant]
  12. IPRATROPIUM BROMIDE [Concomitant]
  13. LIDOCAINE [Concomitant]
  14. LIDOCAINE 5% OINT [Concomitant]
  15. MEGESTROL SUSPENSION [Concomitant]
  16. ENSURE [Concomitant]
  17. OMEPRAZOLE [Concomitant]
  18. PREDNISONE TAB [Concomitant]
  19. TERAZOSIN HCL [Concomitant]
  20. THIAMINE [Concomitant]
  21. WARFARIN [Concomitant]

REACTIONS (2)
  - CONFUSIONAL STATE [None]
  - MENTAL STATUS CHANGES [None]
